FAERS Safety Report 4642429-2 (Version None)
Quarter: 2005Q2

REPORT INFORMATION
  Report Type: 
  Country: None (occurrence: None)
  Receive Date: 20050420
  Receipt Date: 20050405
  Transmission Date: 20051028
  Serious: Yes (Congenital Anomaly)
  Sender: FDA-Public Use
  Company Number: 2005AC00535

PATIENT
  Age: 7 Month

DRUGS (1)
  1. BUDESONIDE  + FORMOTEROL (SYMBICORT) [Suspect]
     Indication: ASTHMA
     Dosage: 400/12 MCG

REACTIONS (2)
  - CONGENITAL ABSENCE OF BILE DUCTS [None]
  - DRUG EXPOSURE DURING PREGNANCY [None]
